FAERS Safety Report 24242487 (Version 1)
Quarter: 2024Q3

REPORT INFORMATION
  Report Type: Spontaneous
  Country: US (occurrence: None)
  Receive Date: 20240822
  Receipt Date: 20240822
  Transmission Date: 20241017
  Serious: Yes (unspecified)
  Sender: Public
  Company Number: None

PATIENT
  Age: 41 Year
  Sex: Male
  Weight: 67 kg

DRUGS (2)
  1. DAPTOMYCIN [Suspect]
     Active Substance: DAPTOMYCIN
     Indication: Pancreatitis necrotising
     Dosage: FREQUENCY : DAILY;?
     Route: 042
     Dates: start: 20240805, end: 20240822
  2. ZOSYN [Suspect]
     Active Substance: PIPERACILLIN SODIUM\TAZOBACTAM SODIUM
     Indication: Pancreatitis necrotising
     Dosage: OTHER FREQUENCY : EVERY 6 HOURS;?
     Route: 042
     Dates: start: 20240724, end: 20240822

REACTIONS (3)
  - White blood cell count decreased [None]
  - Neutrophil count decreased [None]
  - Agranulocytosis [None]

NARRATIVE: CASE EVENT DATE: 20240821
